FAERS Safety Report 16017135 (Version 1)
Quarter: 2019Q1

REPORT INFORMATION
  Report Type: Spontaneous
  Country: US (occurrence: US)
  Receive Date: 20190228
  Receipt Date: 20190228
  Transmission Date: 20190418
  Serious: Yes (Hospitalization)
  Sender: FDA-Public Use
  Company Number: US-BAYER-2019-041680

PATIENT
  Age: 17 Month
  Sex: Male

DRUGS (1)
  1. MIRALAX [Suspect]
     Active Substance: POLYETHYLENE GLYCOL 3350
     Indication: PRODUCT USED FOR UNKNOWN INDICATION
     Route: 065

REACTIONS (7)
  - Diarrhoea [Unknown]
  - Incorrect product administration duration [Unknown]
  - Product administered to patient of inappropriate age [None]
  - Product prescribing issue [None]
  - Dyspnoea [Unknown]
  - Constipation [Unknown]
  - Frequent bowel movements [Unknown]
